FAERS Safety Report 11021187 (Version 4)
Quarter: 2015Q4

REPORT INFORMATION
  Report Type: Spontaneous
  Country: BR (occurrence: BR)
  Receive Date: 20150413
  Receipt Date: 20151210
  Transmission Date: 20160304
  Serious: Yes (Other)
  Sender: FDA-Public Use
  Company Number: BR-JNJFOC-20150405833

PATIENT
  Sex: Female
  Weight: 75 kg

DRUGS (3)
  1. REMICADE [Suspect]
     Active Substance: INFLIXIMAB
     Indication: ANKYLOSING SPONDYLITIS
     Route: 042
     Dates: start: 2014
  2. REMICADE [Suspect]
     Active Substance: INFLIXIMAB
     Indication: ANKYLOSING SPONDYLITIS
     Route: 042
     Dates: start: 20151014
  3. RIVOTRIL [Concomitant]
     Active Substance: CLONAZEPAM
     Indication: ANXIETY
     Route: 065

REACTIONS (10)
  - Musculoskeletal stiffness [Unknown]
  - Ischaemia [Unknown]
  - Swelling [Unknown]
  - Drug effect incomplete [Unknown]
  - Pain [Unknown]
  - Paraesthesia [Unknown]
  - Formication [Unknown]
  - Speech disorder [Unknown]
  - Abasia [Unknown]
  - Movement disorder [Unknown]

NARRATIVE: CASE EVENT DATE: 2015
